FAERS Safety Report 15488502 (Version 1)
Quarter: 2018Q4

REPORT INFORMATION
  Report Type: Spontaneous
  Country: FR (occurrence: FR)
  Receive Date: 20181011
  Receipt Date: 20181011
  Transmission Date: 20190205
  Serious: Yes (Death, Life-Threatening, Hospitalization, Other)
  Sender: FDA-Public Use
  Company Number: FR-PURDUE PHARMA-GBR-2018-0060350

PATIENT
  Age: 34 Year
  Sex: Male

DRUGS (9)
  1. DIAZEPAM. [Suspect]
     Active Substance: DIAZEPAM
     Indication: BIPOLAR DISORDER
     Dosage: 30 MG, DAILY
     Route: 065
  2. LOXAPINE. [Suspect]
     Active Substance: LOXAPINE
     Indication: BIPOLAR DISORDER
     Dosage: 100 MG, UNK
     Route: 030
     Dates: start: 20120625
  3. VALPROIC ACID. [Suspect]
     Active Substance: VALPROIC ACID
     Indication: BIPOLAR DISORDER
     Dosage: 1000 MG, DAILY
     Route: 065
  4. NON-PMN MORPHINE SULFATE [Suspect]
     Active Substance: MORPHINE SULFATE
     Indication: ABDOMINAL PAIN
     Dosage: UNK
     Route: 042
     Dates: start: 20120625
  5. TRAMADOL. [Suspect]
     Active Substance: TRAMADOL
     Indication: ABDOMINAL PAIN
     Dosage: 100 MG, UNK
     Route: 065
     Dates: start: 20120625
  6. TROPATEPINE [Suspect]
     Active Substance: TROPATEPINE
     Indication: BIPOLAR DISORDER
     Dosage: 10 MG, DAILY
     Route: 065
     Dates: start: 20120605
  7. LOXAPINE. [Suspect]
     Active Substance: LOXAPINE
     Indication: BIPOLAR DISORDER
     Dosage: 375 MG, DAILY (275+100 MG ; AS REQUIRED)
     Route: 048
     Dates: start: 20120614
  8. QUETIAPINE. [Suspect]
     Active Substance: QUETIAPINE
     Indication: BIPOLAR DISORDER
     Dosage: 600 MG, DAILY
     Route: 048
     Dates: start: 20120605
  9. LOXAPINE. [Suspect]
     Active Substance: LOXAPINE
     Dosage: 275 MG, DAILY
     Route: 048
     Dates: start: 20120614

REACTIONS (12)
  - Candida infection [Fatal]
  - Septic shock [Fatal]
  - Subileus [Fatal]
  - Necrotising colitis [Fatal]
  - Staphylococcal bacteraemia [Fatal]
  - Intestinal ischaemia [Fatal]
  - Gastric haemorrhage [Fatal]
  - Metabolic acidosis [Fatal]
  - Multiple organ dysfunction syndrome [Fatal]
  - Large intestine perforation [Fatal]
  - Pneumonia pseudomonal [Fatal]
  - Cardiac arrest [Fatal]

NARRATIVE: CASE EVENT DATE: 20120625
